FAERS Safety Report 23836546 (Version 1)
Quarter: 2024Q2

REPORT INFORMATION
  Report Type: Spontaneous
  Country: CN (occurrence: CN)
  Receive Date: 20240509
  Receipt Date: 20240509
  Transmission Date: 20240715
  Serious: Yes (Other)
  Sender: FDA-Public Use
  Company Number: None

PATIENT
  Age: 45 Year
  Sex: Male
  Weight: 78 kg

DRUGS (9)
  1. CYCLOPHOSPHAMIDE [Suspect]
     Active Substance: CYCLOPHOSPHAMIDE
     Indication: Malignant neoplasm of thymus
     Dosage: 0.8 G, ONE TIME IN ONE DAY, DILUTED WITH 60 ML OF 0.9% SODIUM CHLORIDE, GROUP SOLUTION, START TIME:
     Route: 013
     Dates: start: 20240327, end: 20240327
  2. SODIUM CHLORIDE [Suspect]
     Active Substance: SODIUM CHLORIDE
     Indication: Medication dilution
     Dosage: 60 ML, ONE TIME IN ONE DAY, USED TO DILUTE 0.8 G CYCLOPHOSPHAMIDE, GROUP SOLUTION, START TIME: 10:55
     Route: 013
     Dates: start: 20240327, end: 20240327
  3. SODIUM CHLORIDE [Suspect]
     Active Substance: SODIUM CHLORIDE
     Dosage: 60 ML, ONE TIME IN ONE DAY, USED TO DILUTE 80 MG DOXORUBICIN HYDROCHLORIDE, GROUP SOLUTION, START TI
     Route: 013
     Dates: start: 20240327, end: 20240327
  4. SODIUM CHLORIDE [Suspect]
     Active Substance: SODIUM CHLORIDE
     Dosage: 60 ML, ONE TIME IN ONE DAY, USED TO DILUTE 80 MG CISPLATIN, GROUP SOLUTION, START TIME: 10:55 HR, AN
     Route: 013
     Dates: start: 20240327, end: 20240327
  5. SODIUM CHLORIDE [Suspect]
     Active Substance: SODIUM CHLORIDE
     Dosage: 20 ML, ONE TIME IN ONE DAY, USED TO DILUTE 400 MG MESNA, GROUP SOLUTION, START TIME: 10:55 HR, ANTI-
     Route: 013
     Dates: start: 20240327, end: 20240327
  6. DOXORUBICIN HYDROCHLORIDE [Suspect]
     Active Substance: DOXORUBICIN HYDROCHLORIDE
     Indication: Malignant neoplasm of thymus
     Dosage: 80 MG, ONE TIME IN ONE DAY, DILUTED WITH 60 ML OF 0.9% SODIUM CHLORIDE, GROUP SOLUTION, START TIME:
     Route: 013
     Dates: start: 20240327, end: 20240327
  7. CISPLATIN [Suspect]
     Active Substance: CISPLATIN
     Indication: Malignant neoplasm of thymus
     Dosage: 80 MG, ONE TIME IN ONE DAY, DILUTED WITH 60 ML OF 0.9% SODIUM CHLORIDE, GROUP SOLUTION, START TIME:
     Route: 013
     Dates: start: 20240327, end: 20240327
  8. MESNA [Suspect]
     Active Substance: MESNA
     Indication: Urinary tract toxicity
     Dosage: 400 MG, ONE TIME IN ONE DAY, DILUTED WITH 20 ML OF 0.9% SODIUM CHLORIDE, GROUP SOLUTION, START TIME:
     Route: 013
     Dates: start: 20240327, end: 20240327
  9. MESNA [Suspect]
     Active Substance: MESNA
     Indication: Drug toxicity prophylaxis

REACTIONS (1)
  - White blood cell count decreased [Recovering/Resolving]

NARRATIVE: CASE EVENT DATE: 20240408
